FAERS Safety Report 8990742 (Version 1)
Quarter: 2012Q4

REPORT INFORMATION
  Report Type: Report from Study
  Country: CA (occurrence: CA)
  Receive Date: 20121228
  Receipt Date: 20121228
  Transmission Date: 20130627
  Serious: Yes (Other)
  Sender: FDA-Public Use
  Company Number: CA-JNJFOC-20121211625

PATIENT
  Age: 53 Year
  Sex: Female
  Weight: 38.56 kg

DRUGS (9)
  1. REMICADE [Suspect]
     Indication: CROHN^S DISEASE
     Route: 042
     Dates: start: 20100715
  2. ASACOL [Concomitant]
     Route: 065
  3. PREDNISOLONE [Concomitant]
     Route: 065
  4. PANTOLOC [Concomitant]
     Route: 065
  5. COVERSYL [Concomitant]
     Route: 065
  6. ATENOLOL [Concomitant]
     Route: 048
  7. DOVOBET [Concomitant]
     Route: 065
  8. TACROLIMUS [Concomitant]
     Route: 065
  9. CLARITIN [Concomitant]
     Route: 065

REACTIONS (2)
  - Psoriasis [Recovering/Resolving]
  - Heart rate increased [Recovering/Resolving]
